FAERS Safety Report 8346077-2 (Version None)
Quarter: 2012Q2

REPORT INFORMATION
  Report Type: 
  Country: None (occurrence: None)
  Receive Date: 20120507
  Receipt Date: 20120425
  Transmission Date: 20120825
  Serious: Yes (Other)
  Sender: FDA-Public Use
  Company Number: JP-2012-1876

PATIENT
  Age: 69 Year
  Sex: Male

DRUGS (5)
  1. VINBLASTINE SULFATE [Suspect]
     Indication: LUNG ADENOCARCINOMA
  2. BEVACIZUMAB (BEVACIZUMAB) ; REGIMEN #1 [Suspect]
     Indication: LUNG ADENOCARCINOMA
  3. NAVELBINE [Suspect]
     Indication: LUNG ADENOCARCINOMA
  4. CISPLATIN [Suspect]
     Indication: LUNG ADENOCARCINOMA
  5. PEMETREXED [Suspect]
     Indication: LUNG ADENOCARCINOMA

REACTIONS (1)
  - ACUTE MYELOID LEUKAEMIA [None]
